FAERS Safety Report 10025192 (Version 1)
Quarter: 2014Q1

REPORT INFORMATION
  Report Type: Spontaneous
  Country: US (occurrence: None)
  Receive Date: 20140304
  Receipt Date: 20140304
  Transmission Date: 20141002
  Serious: Yes (Hospitalization)
  Sender: FDA-Public Use
  Company Number: RB-49905-2013

PATIENT
  Age: 30 Year
  Sex: Female

DRUGS (4)
  1. SUBOXONE [Suspect]
     Indication: DRUG DEPENDENCE
     Route: 060
     Dates: start: 201201, end: 201204
  2. LAMICTAL [Concomitant]
  3. ZOLOFT [Concomitant]
  4. NICOTINE [Concomitant]

REACTIONS (6)
  - Wrong technique in drug usage process [None]
  - Exposure during pregnancy [None]
  - Abdominal pain [None]
  - Gastrointestinal infection [None]
  - Drug withdrawal syndrome [None]
  - Road traffic accident [None]
